FAERS Safety Report 8956671 (Version 2)
Quarter: 2012Q4

REPORT INFORMATION
  Report Type: 
  Country: CA (occurrence: CA)
  Receive Date: 20121210
  Receipt Date: 20121212
  Transmission Date: 20130627
  Serious: Yes (Death, Other)
  Sender: FDA-Public Use
  Company Number: PHHY2011CA108711

PATIENT
  Sex: Female

DRUGS (3)
  1. ACLASTA [Suspect]
     Indication: OSTEOPOROSIS
     Route: 042
     Dates: start: 20100125
  2. ACLASTA [Suspect]
     Route: 042
     Dates: start: 20110301
  3. ACLASTA [Suspect]
     Route: 042
     Dates: start: 20120301

REACTIONS (2)
  - Neoplasm malignant [Fatal]
  - Renal failure [Unknown]
